FAERS Safety Report 7452337-X (Version None)
Quarter: 2011Q2

REPORT INFORMATION
  Report Type: 
  Country: None (occurrence: None)
  Receive Date: 20110502
  Receipt Date: 20090606
  Transmission Date: 20111010
  Serious: Yes (Hospitalization, Other)
  Sender: FDA-Public Use
  Company Number: US-BAYER-200922417NA

PATIENT
  Age: 54 Year
  Sex: Female
  Weight: 72.562 kg

DRUGS (12)
  1. HEPARIN [Concomitant]
     Dosage: 10000 U, UNK
     Route: 042
     Dates: start: 20030402
  2. TRASYLOL [Suspect]
     Indication: CORONARY ARTERIAL STENT INSERTION
     Dosage: UNK
  3. METOPROLOL SUCCINATE [Concomitant]
     Dosage: 25 MG, BID
     Route: 048
  4. EPTIFIBATIDE [Concomitant]
     Dosage: 75 MG, UNK
     Route: 042
  5. CAPTOPRIL [Concomitant]
     Dosage: 6.25 MG, TID
     Route: 048
  6. VERSED [Concomitant]
     Dosage: 2 MG, UNK
     Route: 042
     Dates: start: 20030402
  7. CLOPIDOGREL [Concomitant]
     Dosage: 75 MG, QD
     Route: 048
  8. LIDOCAINE [Concomitant]
     Dosage: 20 CC, LOCAL
     Dates: start: 20030402
  9. ACETYLSALICYLIC ACID SRT [Concomitant]
     Dosage: 81 MG, QD
     Route: 048
  10. INTEGRILIN [Concomitant]
     Dosage: 75MG/100ML
     Route: 042
     Dates: start: 20030402, end: 20030402
  11. FENTANYL [Concomitant]
     Dosage: 100 MCG
     Route: 042
     Dates: start: 20030402
  12. NITROGLYCERIN [Concomitant]
     Dosage: 200 MICROGRAMS
     Dates: start: 20030402

REACTIONS (3)
  - RENAL FAILURE [None]
  - INJURY [None]
  - UNEVALUABLE EVENT [None]
